FAERS Safety Report 13894348 (Version 2)
Quarter: 2017Q3

REPORT INFORMATION
  Report Type: Report from Study
  Country: FI (occurrence: FI)
  Receive Date: 20170822
  Receipt Date: 20170830
  Transmission Date: 20171127
  Serious: No
  Sender: FDA-Public Use
  Company Number: FI-MYLANLABS-2017M1051653

PATIENT

DRUGS (1)
  1. LEPONEX [Suspect]
     Active Substance: CLOZAPINE
     Indication: PRODUCT USED FOR UNKNOWN INDICATION
     Dosage: 100 MG, UNK
     Dates: start: 201705

REACTIONS (2)
  - Heart rate increased [Unknown]
  - Product use issue [Unknown]

NARRATIVE: CASE EVENT DATE: 2017
